FAERS Safety Report 19586936 (Version 2)
Quarter: 2021Q3

REPORT INFORMATION
  Report Type: Report from Study
  Country: US (occurrence: US)
  Receive Date: 20210720
  Receipt Date: 20210728
  Transmission Date: 20211014
  Serious: Yes (Other)
  Sender: FDA-Public Use
  Company Number: US-BEH-2021134091

PATIENT
  Age: 74 Year
  Sex: Female
  Weight: 65 kg

DRUGS (1)
  1. HIZENTRA [Suspect]
     Active Substance: HUMAN IMMUNOGLOBULIN G
     Indication: IMMUNODEFICIENCY COMMON VARIABLE
     Dosage: UNK
     Route: 058
     Dates: start: 202102

REACTIONS (7)
  - Musculoskeletal stiffness [Unknown]
  - Weight increased [Unknown]
  - Limb discomfort [Unknown]
  - Headache [Unknown]
  - Renal disorder [Unknown]
  - Peripheral swelling [Unknown]
  - Sinusitis [Unknown]
